FAERS Safety Report 9536793 (Version 1)
Quarter: 2013Q3

REPORT INFORMATION
  Report Type: Spontaneous
  Country: US (occurrence: US)
  Receive Date: 20130919
  Receipt Date: 20130919
  Transmission Date: 20140515
  Serious: No
  Sender: FDA-Public Use
  Company Number: US-009507513-1309USA003984

PATIENT
  Age: 69 Year
  Sex: Female

DRUGS (6)
  1. SAPHRIS [Suspect]
     Indication: BIPOLAR DISORDER
     Dosage: 5 MG TWICE DAILY, ONE IN THE AM, ONE IN THE PM
     Route: 060
     Dates: start: 20130908
  2. SAPHRIS [Suspect]
     Indication: BIPOLAR DISORDER
     Dosage: 10 MG, QD
     Route: 060
  3. FANAPT [Suspect]
     Dosage: UNK
     Dates: end: 201309
  4. EFEXOR ER [Concomitant]
  5. LEVOTHYROXINE SODIUM [Concomitant]
  6. CLONAZEPAM [Concomitant]

REACTIONS (4)
  - Dizziness [Not Recovered/Not Resolved]
  - Somnolence [Not Recovered/Not Resolved]
  - Product physical issue [Unknown]
  - Inappropriate schedule of drug administration [Unknown]
